FAERS Safety Report 7198424-5 (Version None)
Quarter: 2010Q4

REPORT INFORMATION
  Report Type: 
  Country: None (occurrence: None)
  Receive Date: 20101227
  Receipt Date: 20101215
  Transmission Date: 20110411
  Serious: Yes (Other)
  Sender: FDA-Public Use
  Company Number: PHHY2010US75539

PATIENT
  Sex: Female

DRUGS (5)
  1. RECLAST [Suspect]
     Indication: OSTEOPENIA
     Dosage: 5 MG
     Route: 042
     Dates: start: 20100607
  2. RECLAST [Suspect]
     Dosage: 5 MG
     Route: 042
     Dates: start: 20100601
  3. MICARDIS [Concomitant]
  4. NADOLOL [Concomitant]
  5. SIMVASTATIN [Concomitant]

REACTIONS (5)
  - COLLAGEN-VASCULAR DISEASE [None]
  - EYE PAIN [None]
  - OCULAR HYPERAEMIA [None]
  - UVEITIS [None]
  - VISION BLURRED [None]
